FAERS Safety Report 4948853-2 (Version None)
Quarter: 2006Q1

REPORT INFORMATION
  Report Type: 
  Country: None (occurrence: None)
  Receive Date: 20060321
  Receipt Date: 20060220
  Transmission Date: 20060701
  Serious: Yes (Hospitalization)
  Sender: FDA-Public Use
  Company Number: FR-ABBOTT-06P-056-0325570-00

PATIENT
  Age: 41 Year
  Sex: Male

DRUGS (13)
  1. NORVIR [Suspect]
     Indication: HIV INFECTION
     Route: 048
     Dates: start: 20051001, end: 20051123
  2. NORVIR [Suspect]
     Route: 048
     Dates: start: 20060106
  3. TRIMETHOPRIM [Suspect]
     Indication: DRUG USE FOR UNKNOWN INDICATION
     Route: 048
  4. FOLIC ACID [Suspect]
     Indication: DRUG USE FOR UNKNOWN INDICATION
     Route: 048
     Dates: start: 20060106
  5. BUPRENORPHINE HCL [Suspect]
     Indication: HIV INFECTION
     Route: 048
  6. BUPRENORPHINE HCL [Suspect]
     Route: 048
     Dates: start: 20060106
  7. LAMIVUDINE + ZIDOVUDINE [Suspect]
     Indication: HIV INFECTION
     Dates: start: 20051001, end: 20051123
  8. LAMIVUDINE + ZIDOVUDINE [Suspect]
     Route: 048
     Dates: start: 20060106
  9. FOSAMPRENAVIR [Suspect]
     Indication: HIV INFECTION
     Dates: end: 20051123
  10. FOSAMPRENAVIR [Suspect]
     Route: 048
     Dates: start: 20060106
  11. ACETAMINOPHEN [Concomitant]
     Indication: DRUG USE FOR UNKNOWN INDICATION
     Dates: start: 20060106
  12. BACTRIM [Concomitant]
     Indication: HIV INFECTION
  13. BACTRIM [Concomitant]
     Dates: start: 20060106

REACTIONS (7)
  - BRONCHOPLEURAL FISTULA [None]
  - CALCULUS URETHRAL [None]
  - NEPHROLITHIASIS [None]
  - PNEUMOTHORAX [None]
  - PULMONARY NECROSIS [None]
  - RENAL PAIN [None]
  - SEPTIC SHOCK [None]
